FAERS Safety Report 9422611 (Version 1)
Quarter: 2013Q3

REPORT INFORMATION
  Report Type: Spontaneous
  Country: US (occurrence: US)
  Receive Date: 20130726
  Receipt Date: 20130726
  Transmission Date: 20140515
  Serious: No
  Sender: FDA-Public Use
  Company Number: US-MYLANLABS-2012S1026071

PATIENT
  Sex: Female

DRUGS (11)
  1. BUSPIRONE HYDROCHLORIDE TABLETS, USP [Suspect]
     Indication: INSOMNIA
     Route: 048
     Dates: start: 2012, end: 2012
  2. LITHIUM CARBONATE [Concomitant]
     Route: 048
  3. BACLOFEN [Concomitant]
     Route: 048
  4. FLORINEF [Concomitant]
     Route: 048
  5. RESTORIL [Concomitant]
     Route: 048
  6. LEVOXYL [Concomitant]
     Route: 048
  7. VITAMIN D [Concomitant]
     Route: 048
  8. BONE UP [Concomitant]
     Route: 048
  9. AMINO ACID [Concomitant]
     Route: 048
  10. VITAMIN B [Concomitant]
     Route: 048
  11. ZINC GLUCONATE [Concomitant]
     Route: 048

REACTIONS (3)
  - Vomiting [Recovered/Resolved]
  - Dizziness [Recovered/Resolved]
  - Nausea [Recovered/Resolved]
